FAERS Safety Report 12110927 (Version 2)
Quarter: 2016Q1

REPORT INFORMATION
  Report Type: Spontaneous
  Country: US (occurrence: US)
  Receive Date: 20160224
  Receipt Date: 20160229
  Transmission Date: 20160526
  Serious: No
  Sender: FDA-Public Use
  Company Number: US-SHIRE-US201602195

PATIENT
  Age: 64 Year
  Sex: Female

DRUGS (7)
  1. FISH OIL [Concomitant]
     Active Substance: FISH OIL
     Indication: SUPPLEMENTATION THERAPY
     Dosage: 2000 MG, 1X/DAY:QD
     Route: 048
  2. VITAMIN D [Concomitant]
     Active Substance: CHOLECALCIFEROL
     Indication: SUPPLEMENTATION THERAPY
     Dosage: 1000 MG, 1X/DAY:QD
     Route: 048
  3. ESTRADIOL. [Concomitant]
     Active Substance: ESTRADIOL
     Indication: HORMONE REPLACEMENT THERAPY
     Dosage: 0.5 MG, 3X/DAY:TID
     Route: 048
  4. PROMETRIUM [Concomitant]
     Active Substance: PROGESTERONE
     Indication: HORMONE REPLACEMENT THERAPY
     Dosage: 100 MG, 3X/DAY:TID
     Route: 048
  5. VSL#3 [Concomitant]
     Active Substance: PROBIOTICS NOS
     Indication: PROBIOTIC THERAPY
     Dosage: UNK, 1X/DAY:QD
     Route: 048
  6. LIALDA [Suspect]
     Active Substance: MESALAMINE
     Indication: COLITIS ULCERATIVE
     Dosage: 2.4 G, 1X/DAY:QD
     Route: 048
     Dates: start: 201511
  7. FLAXSEED [Concomitant]
     Active Substance: FLAX SEED
     Indication: SUPPLEMENTATION THERAPY
     Dosage: 100 MG, 1X/DAY:QD
     Route: 048

REACTIONS (1)
  - Medication residue present [Unknown]

NARRATIVE: CASE EVENT DATE: 201511
